FAERS Safety Report 5984233-9 (Version None)
Quarter: 2008Q4

REPORT INFORMATION
  Report Type: 
  Country: None (occurrence: None)
  Receive Date: 20081208
  Receipt Date: 20081127
  Transmission Date: 20090506
  Serious: Yes (Life-Threatening, Other)
  Sender: FDA-Public Use
  Company Number: PHHO2007MX05827

PATIENT
  Sex: Female

DRUGS (1)
  1. ZELNORM [Suspect]
     Indication: IRRITABLE BOWEL SYNDROME
     Dosage: 6 MG, BID
     Route: 048
     Dates: start: 20061001, end: 20070301

REACTIONS (5)
  - ABDOMINAL PAIN [None]
  - BACK PAIN [None]
  - GASTRIC DISORDER [None]
  - NEPHROLITHIASIS [None]
  - RENAL STONE REMOVAL [None]
